FAERS Safety Report 24870991 (Version 1)
Quarter: 2025Q1

REPORT INFORMATION
  Report Type: Spontaneous
  Country: BR (occurrence: BR)
  Receive Date: 20250121
  Receipt Date: 20250121
  Transmission Date: 20250409
  Serious: Yes (Other)
  Sender: CURRAX PHARMACEUTICALS
  Company Number: BR-NALPROPION PHARMACEUTICALS INC.-BR-2025CUR000152

PATIENT
  Sex: Female

DRUGS (1)
  1. CONTRAVE [Suspect]
     Active Substance: BUPROPION HYDROCHLORIDE\NALTREXONE HYDROCHLORIDE
     Indication: Weight decreased
     Dosage: 2.0 DOSAGE FORM (1 DOSAGE FORM, 2 IN 1 DAY) (VALIDITY: JUL-2025 THE BEGINNING DATE OF THE TREATMENT:
     Route: 048

REACTIONS (6)
  - Neoplasm malignant [Unknown]
  - Impatience [Unknown]
  - Anger [Unknown]
  - Irritability [Unknown]
  - Headache [Unknown]
  - Nervousness [Unknown]
